FAERS Safety Report 4760304-X (Version None)
Quarter: 2005Q3

REPORT INFORMATION
  Report Type: 
  Country: None (occurrence: None)
  Receive Date: 20050902
  Receipt Date: 20050822
  Transmission Date: 20060218
  Serious: Yes (Death)
  Sender: FDA-Public Use
  Company Number: CA-GLAXOSMITHKLINE-A0571133A

PATIENT
  Age: 58 Year
  Sex: Female

DRUGS (15)
  1. TOSITUMOMAB [Suspect]
     Indication: B-CELL LYMPHOMA
     Dosage: 450MG SINGLE DOSE
     Route: 042
     Dates: start: 20050228, end: 20050228
  2. IODINE I 131 TOSITUMOMAB [Suspect]
     Indication: B-CELL LYMPHOMA
     Dosage: 5MCI SINGLE DOSE
     Route: 042
     Dates: start: 20050228, end: 20050228
  3. TOSITUMOMAB [Suspect]
     Dosage: 450MG SINGLE DOSE
     Route: 042
     Dates: start: 20050311, end: 20050311
  4. IODINE I 131 TOSITUMOMAB [Suspect]
     Dosage: 74.9MCI SINGLE DOSE
     Route: 042
     Dates: start: 20050311, end: 20050311
  5. COUMADIN [Concomitant]
     Indication: DEEP VEIN THROMBOSIS
     Dosage: 5MG PER DAY
     Route: 048
     Dates: start: 20041201
  6. LASIX [Concomitant]
     Indication: OEDEMA PERIPHERAL
     Dosage: 40MG TWICE PER DAY
     Route: 048
     Dates: start: 20050101
  7. SPIRONOLACTONE [Concomitant]
     Indication: OEDEMA PERIPHERAL
     Dosage: 100MG PER DAY
     Route: 048
     Dates: start: 20050101
  8. BACTRIM DS [Concomitant]
     Indication: PROPHYLAXIS
     Dosage: 1TAB THREE TIMES PER WEEK
     Route: 048
     Dates: start: 20040805
  9. REACTINE [Concomitant]
     Indication: SEASONAL ALLERGY
     Dosage: 10MG AT NIGHT
  10. ALLOPURINOL [Concomitant]
     Dosage: 300MG PER DAY
     Dates: start: 20050704
  11. GCSF [Concomitant]
     Dosage: 300UG PER DAY
     Dates: start: 20050710
  12. ETOPOSIDE [Concomitant]
  13. METHYLPREDNISOLONE [Concomitant]
  14. CYTARABINE [Concomitant]
  15. CISPLATIN [Concomitant]

REACTIONS (2)
  - DISEASE PROGRESSION [None]
  - RESPIRATORY FAILURE [None]
